FAERS Safety Report 5262218-8 (Version None)
Quarter: 2007Q1

REPORT INFORMATION
  Report Type: 
  Country: None (occurrence: None)
  Receive Date: 20070311
  Receipt Date: 20070228
  Transmission Date: 20070707
  Serious: Yes (Other)
  Sender: FDA-Public Use
  Company Number: 2006UW11511

PATIENT
  Sex: Female
  Weight: 70.5 kg

DRUGS (3)
  1. SEROQUEL [Suspect]
     Indication: BIPOLAR DISORDER
     Route: 048
     Dates: end: 20050101
  2. RISPERDAL [Concomitant]
  3. ZYPREXA [Concomitant]

REACTIONS (4)
  - BIPOLAR DISORDER [None]
  - HEPATITIS [None]
  - HYPERGLYCAEMIA [None]
  - WEIGHT INCREASED [None]
